FAERS Safety Report 12142332 (Version 1)
Quarter: 2016Q1

REPORT INFORMATION
  Report Type: Report from Study
  Country: GB (occurrence: GB)
  Receive Date: 20160303
  Receipt Date: 20160303
  Transmission Date: 20160526
  Serious: Yes (Other)
  Sender: FDA-Public Use
  Company Number: GB-ABBVIE-15K-167-1418060-00

PATIENT
  Age: 29 Year
  Sex: Male

DRUGS (1)
  1. HUMIRA [Suspect]
     Active Substance: ADALIMUMAB
     Indication: ANKYLOSING SPONDYLITIS
     Route: 058

REACTIONS (6)
  - General physical condition abnormal [Unknown]
  - Nasal cyst [Not Recovered/Not Resolved]
  - Pharyngitis [Unknown]
  - Rhinitis [Unknown]
  - Impaired healing [Unknown]
  - Surgery [Not Recovered/Not Resolved]

NARRATIVE: CASE EVENT DATE: 201506
